FAERS Safety Report 17531643 (Version 4)
Quarter: 2020Q1

REPORT INFORMATION
  Report Type: Spontaneous
  Country: US (occurrence: US)
  Receive Date: 20200311
  Receipt Date: 20200323
  Transmission Date: 20200409
  Serious: No
  Sender: FDA-Public Use
  Company Number: US-SA-2020SA060870

PATIENT
  Age: 84 Year
  Sex: Female

DRUGS (1)
  1. ENOXAPARIN SODIUM. [Suspect]
     Active Substance: ENOXAPARIN SODIUM
     Indication: DEEP VEIN THROMBOSIS
     Dosage: 80 MG, QD
     Dates: start: 20200303, end: 20200305

REACTIONS (5)
  - Feeling of body temperature change [Unknown]
  - Injection site bruising [Unknown]
  - Injection site mass [Unknown]
  - Syringe issue [Unknown]
  - Movement disorder [Unknown]
